FAERS Safety Report 14733969 (Version 1)
Quarter: 2018Q2

REPORT INFORMATION
  Report Type: Spontaneous
  Country: US (occurrence: US)
  Receive Date: 20180403
  Receipt Date: 20180403
  Transmission Date: 20180711
  Serious: Yes (Hospitalization)
  Sender: FDA-Public Use
  Company Number: None

PATIENT
  Age: 52 Year
  Sex: Male
  Weight: 86 kg

DRUGS (1)
  1. YESCARTA [Suspect]
     Active Substance: AXICABTAGENE CILOLEUCEL
     Dates: start: 20180227

REACTIONS (7)
  - Agitation [None]
  - Dysgraphia [None]
  - Learning disorder [None]
  - Disorientation [None]
  - Neurotoxicity [None]
  - Encephalopathy [None]
  - Somnolence [None]

NARRATIVE: CASE EVENT DATE: 20180303
